FAERS Safety Report 22871185 (Version 3)
Quarter: 2024Q1

REPORT INFORMATION
  Report Type: Spontaneous
  Country: GB (occurrence: None)
  Receive Date: 20230828
  Receipt Date: 20240131
  Transmission Date: 20240410
  Serious: Yes (Hospitalization)
  Sender: FDA-Public Use
  Company Number: GB-ROCHE-3274309

PATIENT
  Sex: Female

DRUGS (3)
  1. PHESGO [Suspect]
     Active Substance: HYALURONIDASE-ZZXF\PERTUZUMAB\TRASTUZUMAB
     Indication: Neoplasm malignant
     Route: 058
     Dates: start: 202112
  2. PHESGO [Suspect]
     Active Substance: HYALURONIDASE-ZZXF\PERTUZUMAB\TRASTUZUMAB
     Route: 048
  3. PHESGO [Suspect]
     Active Substance: HYALURONIDASE-ZZXF\PERTUZUMAB\TRASTUZUMAB
     Dosage: STRENGTH:600MG/600MG? DOSE:600MG/600MG
     Route: 058
     Dates: start: 20211111

REACTIONS (5)
  - Pneumonia [Not Recovered/Not Resolved]
  - Scab [Unknown]
  - Fatigue [Unknown]
  - Oral pain [Not Recovered/Not Resolved]
  - Mucosal inflammation [Recovering/Resolving]
